FAERS Safety Report 5653631-5 (Version None)
Quarter: 2008Q1

REPORT INFORMATION
  Report Type: 
  Country: None (occurrence: None)
  Receive Date: 20080306
  Receipt Date: 20080227
  Transmission Date: 20080703
  Serious: Yes (Hospitalization)
  Sender: FDA-Public Use
  Company Number: NO-JNJFOC-20080206031

PATIENT
  Sex: Female

DRUGS (3)
  1. TOPAMAX [Suspect]
     Indication: EPILEPSY
     Route: 048
  2. NITRAZEPAM [Concomitant]
     Indication: INSOMNIA
     Route: 048
  3. MELATONIN [Concomitant]
     Indication: INSOMNIA
     Route: 048

REACTIONS (3)
  - CALCULUS URINARY [None]
  - NEPHROCALCINOSIS [None]
  - URINE URIC ACID INCREASED [None]
